FAERS Safety Report 7412954-X (Version None)
Quarter: 2011Q2

REPORT INFORMATION
  Report Type: 
  Country: None (occurrence: None)
  Receive Date: 20110413
  Receipt Date: 20110404
  Transmission Date: 20111010
  Serious: Yes (Hospitalization, Other)
  Sender: FDA-Public Use
  Company Number: US-ASTRAZENECA-2011SE05487

PATIENT
  Age: 48 Year
  Sex: Male
  Weight: 107.5 kg

DRUGS (1)
  1. NEXIUM [Suspect]
     Route: 048

REACTIONS (7)
  - COLONIC POLYP [None]
  - DIVERTICULITIS [None]
  - DYSPEPSIA [None]
  - LARGE INTESTINE PERFORATION [None]
  - INSOMNIA [None]
  - PERITONEAL ABSCESS [None]
  - DRUG DOSE OMISSION [None]
